FAERS Safety Report 18241897 (Version 2)
Quarter: 2020Q3

REPORT INFORMATION
  Report Type: Spontaneous
  Country: AU (occurrence: AU)
  Receive Date: 20200908
  Receipt Date: 20200915
  Transmission Date: 20201103
  Serious: Yes (Hospitalization, Other)
  Sender: FDA-Public Use
  Company Number: AU-PFIZER INC-2020338125

PATIENT
  Age: 65 Year
  Sex: Male

DRUGS (4)
  1. FUROSEMIDE. [Suspect]
     Active Substance: FUROSEMIDE
     Indication: CARDIAC FAILURE
     Dosage: 40 MG, DAILY
     Route: 048
     Dates: start: 19680209
  2. FUROSEMIDE. [Suspect]
     Active Substance: FUROSEMIDE
     Dosage: 40 MG
     Route: 042
     Dates: start: 1968, end: 1968
  3. FUROSEMIDE. [Suspect]
     Active Substance: FUROSEMIDE
     Dosage: 120 MG, DAILY
     Route: 048
     Dates: start: 1968
  4. ERYTHROMYCIN. [Concomitant]
     Active Substance: ERYTHROMYCIN
     Indication: BRONCHITIS CHRONIC
     Dosage: UNK ( ONE WEEK)
     Dates: start: 19680209

REACTIONS (4)
  - Drug ineffective [Recovered/Resolved]
  - Bullous haemorrhagic dermatosis [Recovered/Resolved]
  - Glycosuria [Recovered/Resolved]
  - Product administration error [Recovered/Resolved]

NARRATIVE: CASE EVENT DATE: 1968
